FAERS Safety Report 7153251-X (Version None)
Quarter: 2010Q4

REPORT INFORMATION
  Report Type: 
  Country: None (occurrence: None)
  Receive Date: 20101213
  Receipt Date: 20101203
  Transmission Date: 20110411
  Serious: Yes (Other)
  Sender: FDA-Public Use
  Company Number: ES-ROCHE-726343

PATIENT
  Age: 54 Year
  Sex: Female

DRUGS (2)
  1. XENICAL [Suspect]
     Indication: OVERWEIGHT
     Dosage: MONDAY TO FRIDAY: 120 MG TWICE DAILY; SATUDAY AND SUNDAY: 120 MG THRICE DAILY
     Route: 048
     Dates: start: 20060101
  2. ENALAPRIL [Concomitant]
     Indication: HYPERTENSION
     Route: 048
     Dates: start: 20040101

REACTIONS (1)
  - THROMBOCYTOPENIA [None]
